FAERS Safety Report 8557616-0 (Version None)
Quarter: 2012Q3

REPORT INFORMATION
  Report Type: 
  Country: None (occurrence: None)
  Receive Date: 20120801
  Receipt Date: 20120731
  Transmission Date: 20120928
  Serious: No
  Sender: FDA-Public Use
  Company Number: US-BAYER-2012-077116

PATIENT
  Sex: Male

DRUGS (2)
  1. ULTRAVIST 150 [Suspect]
     Indication: ABDOMINAL PAIN UPPER
  2. ULTRAVIST 150 [Suspect]
     Indication: COMPUTERISED TOMOGRAM ABDOMEN
     Dosage: 125 ML, ONCE
     Dates: start: 20120730, end: 20120730

REACTIONS (7)
  - CHEST DISCOMFORT [None]
  - DYSPHAGIA [None]
  - VOMITING [None]
  - EYE PRURITUS [None]
  - URTICARIA [None]
  - SNEEZING [None]
  - OCULAR HYPERAEMIA [None]
